FAERS Safety Report 25743175 (Version 1)
Quarter: 2025Q3

REPORT INFORMATION
  Report Type: Spontaneous
  Country: GB (occurrence: GB)
  Receive Date: 20250830
  Receipt Date: 20250830
  Transmission Date: 20251020
  Serious: Yes (Other)
  Sender: ACCORD
  Company Number: GB-Accord-486985

PATIENT
  Sex: Male

DRUGS (1)
  1. SPIRONOLACTONE [Suspect]
     Active Substance: SPIRONOLACTONE
     Indication: Blood pressure measurement

REACTIONS (3)
  - Dizziness [Recovered/Resolved]
  - Limb discomfort [Recovered/Resolved]
  - Hallucination [Unknown]
